FAERS Safety Report 23888132 (Version 1)
Quarter: 2024Q2

REPORT INFORMATION
  Report Type: Spontaneous
  Country: US (occurrence: US)
  Receive Date: 20240523
  Receipt Date: 20240523
  Transmission Date: 20240715
  Serious: Yes (Other)
  Sender: FDA-Public Use
  Company Number: US-TEVA-VS-3173379

PATIENT
  Age: 70 Year
  Sex: Female

DRUGS (1)
  1. QVAR REDIHALER [Suspect]
     Active Substance: BECLOMETHASONE DIPROPIONATE
     Indication: Asthma
     Dosage: 80 MCG/DOSE
     Route: 065
     Dates: start: 20240319

REACTIONS (5)
  - Hypersensitivity [Recovering/Resolving]
  - Hypoaesthesia [Recovering/Resolving]
  - Cough [Recovering/Resolving]
  - Speech disorder [Unknown]
  - Hypoaesthesia oral [Unknown]

NARRATIVE: CASE EVENT DATE: 20240101
